FAERS Safety Report 20613773 (Version 2)
Quarter: 2022Q1

REPORT INFORMATION
  Report Type: Spontaneous
  Country: JP (occurrence: JP)
  Receive Date: 20220319
  Receipt Date: 20220328
  Transmission Date: 20220423
  Serious: Yes (Hospitalization, Other)
  Sender: FDA-Public Use
  Company Number: JP-Accord-257767

PATIENT
  Age: 75 Year
  Sex: Female

DRUGS (6)
  1. METHOTREXATE [Suspect]
     Active Substance: METHOTREXATE
     Indication: Rheumatoid arthritis
  2. SULFASALAZINE [Concomitant]
     Active Substance: SULFASALAZINE
     Indication: Rheumatoid arthritis
     Route: 048
  3. MITIGLINIDE CALCIUM ANHYDROUS [Concomitant]
     Active Substance: MITIGLINIDE CALCIUM ANHYDROUS
     Indication: Diabetes mellitus
     Route: 048
  4. VILDAGLIPTIN [Concomitant]
     Active Substance: VILDAGLIPTIN
     Indication: Diabetes mellitus
  5. IPRAGLIFLOZIN [Concomitant]
     Active Substance: IPRAGLIFLOZIN
     Indication: Diabetes mellitus
  6. METFORMIN [Concomitant]
     Active Substance: METFORMIN HYDROCHLORIDE
     Indication: Diabetes mellitus

REACTIONS (2)
  - Pneumonitis [Recovering/Resolving]
  - Drug hypersensitivity [Recovering/Resolving]
